FAERS Safety Report 14977674 (Version 1)
Quarter: 2018Q2

REPORT INFORMATION
  Report Type: Spontaneous
  Country: AU (occurrence: AU)
  Receive Date: 20180606
  Receipt Date: 20180606
  Transmission Date: 20180711
  Serious: Yes (Other)
  Sender: FDA-Public Use
  Company Number: AU-ALKEM LABORATORIES LIMITED-AU-ALKEM-2018-03834

PATIENT
  Age: 72 Year
  Sex: Female

DRUGS (8)
  1. TACROLIMUS. [Suspect]
     Active Substance: TACROLIMUS
     Indication: IMMUNOSUPPRESSANT DRUG THERAPY
     Dosage: 8 MG, BID
     Route: 065
  2. CLOBETASONE [Concomitant]
     Active Substance: CLOBETASONE
     Indication: KERATOSIS PILARIS
  3. MYCOPHENOLATE MOFETIL. [Suspect]
     Active Substance: MYCOPHENOLATE MOFETIL
     Indication: IMMUNOSUPPRESSANT DRUG THERAPY
     Dosage: 200 MG, BID
     Route: 065
  4. CLOBETASONE [Concomitant]
     Active Substance: CLOBETASONE
     Indication: SEBORRHOEIC DERMATITIS
     Dosage: UNK
     Route: 061
  5. IVERMECTIN. [Concomitant]
     Active Substance: IVERMECTIN
     Indication: SEBORRHOEIC DERMATITIS
     Dosage: UNK
     Route: 065
  6. CLOBETASONE [Concomitant]
     Active Substance: CLOBETASONE
     Indication: DEMODICIDOSIS
  7. IVERMECTIN. [Concomitant]
     Active Substance: IVERMECTIN
     Indication: DEMODICIDOSIS
  8. IVERMECTIN. [Concomitant]
     Active Substance: IVERMECTIN
     Indication: KERATOSIS PILARIS

REACTIONS (1)
  - Trichodysplasia spinulosa [Unknown]
